FAERS Safety Report 21418932 (Version 6)
Quarter: 2024Q2

REPORT INFORMATION
  Report Type: Spontaneous
  Country: US (occurrence: US)
  Receive Date: 20221006
  Receipt Date: 20240408
  Transmission Date: 20240716
  Serious: No
  Sender: FDA-Public Use
  Company Number: US-PFIZER INC-PV202200076407

PATIENT
  Age: 82 Year
  Sex: Female
  Weight: 79.819 kg

DRUGS (3)
  1. IBRANCE [Suspect]
     Active Substance: PALBOCICLIB
     Indication: Neoplasm malignant
     Dosage: 3 WEEKS ON/ 1 WEEK OFF. REPEAT EVERY 28 DAYS
     Route: 048
  2. IBRANCE [Suspect]
     Active Substance: PALBOCICLIB
     Dosage: 75 MG, 1X/DAY
  3. LETROZOLE [Concomitant]
     Active Substance: LETROZOLE
     Dosage: 2.5 MG
     Dates: start: 202309

REACTIONS (6)
  - Illness [Unknown]
  - Feeding disorder [Unknown]
  - Diarrhoea [Unknown]
  - Dizziness [Unknown]
  - Gait disturbance [Unknown]
  - Alopecia [Unknown]
